FAERS Safety Report 6175212-X (Version None)
Quarter: 2009Q2

REPORT INFORMATION
  Report Type: 
  Country: None (occurrence: None)
  Receive Date: 20090430
  Receipt Date: 20090127
  Transmission Date: 20091009
  Serious: No
  Sender: FDA-Public Use
  Company Number: US-ASTRAZENECA-2009UW02331

PATIENT
  Age: 50 Year
  Sex: Female
  Weight: 52.6 kg

DRUGS (3)
  1. NEXIUM [Suspect]
     Indication: GASTROOESOPHAGEAL REFLUX DISEASE
     Route: 048
     Dates: start: 20090119
  2. ZYZOL [Concomitant]
     Indication: HYPERSENSITIVITY
  3. BENICAR [Concomitant]
     Indication: HYPERTENSION

REACTIONS (4)
  - CHEST PAIN [None]
  - CHOKING SENSATION [None]
  - HEADACHE [None]
  - THROAT IRRITATION [None]
